FAERS Safety Report 22261001 (Version 3)
Quarter: 2023Q2

REPORT INFORMATION
  Report Type: Spontaneous
  Country: US (occurrence: US)
  Receive Date: 20230427
  Receipt Date: 20230612
  Transmission Date: 20230722
  Serious: No
  Sender: FDA-Public Use
  Company Number: US-PFIZER INC-PV202300041878

PATIENT
  Age: 56 Year
  Sex: Female
  Weight: 70.295 kg

DRUGS (1)
  1. PREMARIN [Suspect]
     Active Substance: ESTROGENS, CONJUGATED
     Indication: Atrophic vulvovaginitis
     Dosage: 0.625 MG/GM, 2X/WEEK
     Route: 067
     Dates: start: 20220307

REACTIONS (2)
  - Condition aggravated [Recovered/Resolved]
  - Vulvovaginal pain [Unknown]

NARRATIVE: CASE EVENT DATE: 20221215
